FAERS Safety Report 9355510 (Version 1)
Quarter: 2013Q2

REPORT INFORMATION
  Report Type: Report from Study
  Country: NL (occurrence: NL)
  Receive Date: 20130619
  Receipt Date: 20130619
  Transmission Date: 20140414
  Serious: Yes (Hospitalization)
  Sender: FDA-Public Use
  Company Number: NL-ABBOTT-13P-114-1103589-00

PATIENT
  Sex: Male

DRUGS (2)
  1. LUCRIN DEPOT [Suspect]
     Indication: PROSTATE CANCER
     Route: 058
     Dates: start: 20100218, end: 20120327
  2. LUCRIN DEPOT [Suspect]
     Route: 058
     Dates: start: 20120620

REACTIONS (1)
  - Gastrointestinal infection [Not Recovered/Not Resolved]
